FAERS Safety Report 9060885 (Version 1)
Quarter: 2013Q1

REPORT INFORMATION
  Report Type: Report from Study
  Country: BG (occurrence: BG)
  Receive Date: 20130204
  Receipt Date: 20130204
  Transmission Date: 20140127
  Serious: Yes (Hospitalization)
  Sender: FDA-Public Use
  Company Number: PHHO2011BG019335

PATIENT
  Age: 68 Year
  Sex: Male
  Weight: 80 kg

DRUGS (14)
  1. BLINDED ENALAPRIL [Suspect]
     Indication: CARDIAC FAILURE CHRONIC
     Dosage: CODE NOT BROKEN
     Route: 048
     Dates: start: 20110519, end: 20111105
  2. BLINDED LCZ696 [Suspect]
     Indication: CARDIAC FAILURE CHRONIC
     Dosage: CODE NOT BROKEN
     Route: 048
     Dates: start: 20110519, end: 20111105
  3. BLINDED NO TREATMENT RECEIVED [Suspect]
     Indication: CARDIAC FAILURE CHRONIC
     Dosage: CODE NOT BROKEN
     Route: 048
     Dates: start: 20110519, end: 20111105
  4. BLINDED ENALAPRIL [Suspect]
     Dosage: CODE NOT BROKEN
     Dates: start: 20111115
  5. BLINDED LCZ696 [Suspect]
     Dosage: CODE NOT BROKEN
     Dates: start: 20111115
  6. BLINDED NO TREATMENT RECEIVED [Suspect]
     Dosage: CODE NOT BROKEN
     Dates: start: 20111115
  7. ISOSORBIDE DINITRATE [Concomitant]
     Indication: MYOCARDIAL ISCHAEMIA
     Dosage: UNK
     Dates: start: 20111031, end: 20111108
  8. KCL [Concomitant]
     Indication: POLYURIA
     Dosage: UNK
     Dates: start: 20111031, end: 20111108
  9. METOPROLOL SUCCINATE [Concomitant]
     Indication: CARDIAC FAILURE
     Dosage: 25 MG, QD
     Route: 048
     Dates: start: 20110320
  10. FUROSEMIDE [Concomitant]
     Indication: CARDIAC FAILURE
     Dosage: 40 MG, QD
     Route: 048
     Dates: start: 20110320, end: 20111030
  11. SPIRONOLACTONE [Concomitant]
     Indication: CARDIAC FAILURE
     Dosage: 25 MG, QD
     Dates: start: 20110320, end: 20111030
  12. BENSERAZIDE HYDROCHLORIDE W/LEVODOPA [Concomitant]
     Indication: PARKINSON^S DISEASE
     Dosage: 125 MG, TID
     Route: 048
     Dates: start: 20110503, end: 20111030
  13. ACENOCOUMAROL [Concomitant]
     Indication: PROPHYLAXIS
     Dosage: UNK
     Dates: start: 20110518
  14. ZOPICLONE [Concomitant]
     Indication: INSOMNIA
     Dosage: UNK
     Dates: start: 20111031, end: 20111108

REACTIONS (1)
  - Cardiac failure [Recovering/Resolving]
